FAERS Safety Report 24034825 (Version 1)
Quarter: 2024Q3

REPORT INFORMATION
  Report Type: Spontaneous
  Country: US (occurrence: US)
  Receive Date: 20240701
  Receipt Date: 20240701
  Transmission Date: 20241017
  Serious: No
  Sender: ROCHE
  Company Number: US-ROCHE-10000001919

PATIENT
  Age: 78 Year
  Sex: Male

DRUGS (7)
  1. MABTHERA [Suspect]
     Active Substance: RITUXIMAB
     Indication: Diffuse large B-cell lymphoma
     Route: 065
  2. MABTHERA [Suspect]
     Active Substance: RITUXIMAB
     Indication: Central nervous system lymphoma
  3. METHOTREXATE [Suspect]
     Active Substance: METHOTREXATE
     Indication: Diffuse large B-cell lymphoma
     Route: 065
  4. METHOTREXATE [Suspect]
     Active Substance: METHOTREXATE
     Indication: Central nervous system lymphoma
  5. IBRUTINIB [Concomitant]
     Active Substance: IBRUTINIB
  6. BENDAMUSTINE [Concomitant]
     Active Substance: BENDAMUSTINE
  7. TISAGENLECLEUCEL [Concomitant]
     Active Substance: TISAGENLECLEUCEL

REACTIONS (1)
  - Nephropathy toxic [Unknown]
